FAERS Safety Report 4944674-5 (Version None)
Quarter: 2006Q2

REPORT INFORMATION
  Report Type: 
  Country: None (occurrence: None)
  Receive Date: 20060113
  Receipt Date: 20050309
  Transmission Date: 20061013
  Serious: Yes (Other)
  Sender: FDA-Public Use
  Company Number: HQWYE832003SEP04

PATIENT
  Age: 45 Year
  Sex: Female
  Weight: 54.48 kg

DRUGS (3)
  1. PREMPRO [Suspect]
     Indication: HORMONE REPLACEMENT THERAPY
     Dosage: ORAL
     Route: 048
     Dates: start: 19960101
  2. PROVERA [Suspect]
     Dosage: INTERMITTENT USE DOSE
     Dates: start: 19900101
  3. PREMARIN [Concomitant]

REACTIONS (1)
  - BREAST CANCER [None]
